FAERS Safety Report 6292436-1 (Version None)
Quarter: 2009Q3

REPORT INFORMATION
  Report Type: 
  Country: None (occurrence: None)
  Receive Date: 20090730
  Receipt Date: 20090730
  Transmission Date: 20100115
  Serious: Yes (Hospitalization)
  Sender: FDA-Public Use
  Company Number: None

PATIENT
  Sex: Male
  Weight: 86.6 kg

DRUGS (2)
  1. CISPLATIN 154 MG [Suspect]
     Dosage: 154 MG
     Dates: end: 20090312
  2. TAXOTERE [Suspect]
     Dosage: 154 MG
     Dates: end: 20090312

REACTIONS (3)
  - CELLULITIS [None]
  - INFUSION SITE ERYTHEMA [None]
  - NEUTROPENIA [None]
